FAERS Safety Report 8362865-0 (Version None)
Quarter: 2012Q2

REPORT INFORMATION
  Report Type: 
  Country: None (occurrence: None)
  Receive Date: 20120514
  Receipt Date: 20120514
  Transmission Date: 20120825
  Serious: Yes (Disabling)
  Sender: FDA-Public Use
  Company Number: None

PATIENT
  Age: 44 Year
  Sex: Female
  Weight: 65.7716 kg

DRUGS (2)
  1. QUETIAPINE [Suspect]
     Indication: INSOMNIA
     Dosage: 100 MG - 300 MG NIGHTLY PO
     Route: 048
     Dates: start: 20120312, end: 20120409
  2. VENLAFAXINE HCL EXTENDED-RELEASE [Suspect]
     Indication: BIPOLAR I DISORDER
     Dosage: 300 MG DAILY PO
     Route: 048
     Dates: start: 20120101, end: 20120511

REACTIONS (10)
  - SOMNOLENCE [None]
  - INSOMNIA [None]
  - ANXIETY [None]
  - TEARFULNESS [None]
  - FATIGUE [None]
  - DEPRESSION [None]
  - WITHDRAWAL SYNDROME [None]
  - IRRITABILITY [None]
  - SUICIDAL IDEATION [None]
  - PRODUCT SUBSTITUTION ISSUE [None]
